FAERS Safety Report 24316860 (Version 1)
Quarter: 2024Q3

REPORT INFORMATION
  Report Type: Spontaneous
  Country: DE (occurrence: DE)
  Receive Date: 20240913
  Receipt Date: 20240913
  Transmission Date: 20241016
  Serious: Yes (Other)
  Sender: MERCK
  Company Number: DE-009507513-2409DEU004628

PATIENT
  Sex: Female

DRUGS (1)
  1. KEYTRUDA [Suspect]
     Active Substance: PEMBROLIZUMAB
     Indication: Breast cancer
     Dosage: UNK
     Dates: start: 2021, end: 202211

REACTIONS (4)
  - Radiotherapy [Unknown]
  - Surgery [Unknown]
  - Adverse event [Unknown]
  - Maternal exposure during breast feeding [Unknown]
